FAERS Safety Report 5612056-9 (Version None)
Quarter: 2008Q1

REPORT INFORMATION
  Report Type: 
  Country: None (occurrence: None)
  Receive Date: 20080128
  Receipt Date: 20080118
  Transmission Date: 20080703
  Serious: Yes (Other)
  Sender: FDA-Public Use
  Company Number: 8029315

PATIENT
  Age: 4 Year
  Sex: Male

DRUGS (1)
  1. XOZAL [Suspect]
     Dosage: 56 GTT TWICE PO
     Route: 048
     Dates: start: 20080117, end: 20080118

REACTIONS (1)
  - ACCIDENTAL OVERDOSE [None]
